FAERS Safety Report 21614636 (Version 9)
Quarter: 2023Q2

REPORT INFORMATION
  Report Type: Report from Study
  Country: FR (occurrence: FR)
  Receive Date: 20221118
  Receipt Date: 20230529
  Transmission Date: 20230722
  Serious: Yes (Hospitalization)
  Sender: FDA-Public Use
  Company Number: FR-ARGENX-2022-ARGX-FR002396

PATIENT
  Age: 76 Year
  Sex: Male
  Weight: 88 kg

DRUGS (42)
  1. EFGARTIGIMOD ALFA [Suspect]
     Active Substance: EFGARTIGIMOD ALFA
     Indication: Pemphigus
     Dates: start: 20221012, end: 20221109
  2. PLACEBO [Suspect]
     Active Substance: UNSPECIFIED INGREDIENT
     Indication: Pemphigus
     Dates: start: 20221012, end: 20221109
  3. HYALURONIDASE (HUMAN RECOMBINANT) [Suspect]
     Active Substance: HYALURONIDASE (HUMAN RECOMBINANT)
     Indication: Pemphigus
     Dates: start: 20221012, end: 20221109
  4. PREDNISONE [Suspect]
     Active Substance: PREDNISONE
     Indication: Pemphigus
     Dosage: 45 MG, DAILY
     Route: 048
     Dates: start: 20221012
  5. PREDNISONE [Suspect]
     Active Substance: PREDNISONE
     Dosage: 85 MG, DAILY
     Route: 048
     Dates: start: 20221107
  6. PREDNISOLONE [Suspect]
     Active Substance: PREDNISOLONE
     Indication: Pemphigus
     Dosage: UNK
     Route: 065
  7. PERINDOPRIL [Concomitant]
     Active Substance: PERINDOPRIL
     Indication: Hypertension
     Dosage: 8 MG, DAILY
     Route: 048
     Dates: start: 2007
  8. Calcidose vit D3 [Concomitant]
     Indication: Vitamin D deficiency
     Dosage: 500 MG, BID - TWICE DAILY
     Route: 048
     Dates: start: 2021
  9. RIVOTRIL [Concomitant]
     Active Substance: CLONAZEPAM
     Indication: Myoclonus
     Dosage: 15 MG, DAILY
     Route: 048
     Dates: start: 2017
  10. RIVOTRIL [Concomitant]
     Active Substance: CLONAZEPAM
     Dosage: 5 ML, BID DAILY
     Route: 048
     Dates: start: 2017
  11. RIVOTRIL [Concomitant]
     Active Substance: CLONAZEPAM
     Dosage: 10 ML, DAILY
     Route: 048
     Dates: start: 2017
  12. LANSOPRAZOLE [Concomitant]
     Active Substance: LANSOPRAZOLE
     Indication: Gastrooesophageal reflux disease
     Dosage: 15 MG, DAILY
     Route: 048
     Dates: start: 2021
  13. ALFUZOSIN HYDROCHLORIDE [Concomitant]
     Active Substance: ALFUZOSIN HYDROCHLORIDE
     Indication: Benign prostatic hyperplasia
     Dosage: 10 MG, DAILY
     Route: 048
     Dates: start: 2019
  14. LUMIGAN [Concomitant]
     Active Substance: BIMATOPROST
     Indication: Glaucoma
     Dosage: 1 GTT, DAILY
     Route: 047
     Dates: start: 1982
  15. COMBIGAN [Concomitant]
     Active Substance: BRIMONIDINE TARTRATE\TIMOLOL MALEATE
     Indication: Glaucoma
     Dosage: 2 GTT, BID
     Route: 047
     Dates: start: 1982
  16. TRUSOPT [Concomitant]
     Active Substance: DORZOLAMIDE HYDROCHLORIDE
     Indication: Glaucoma
     Dosage: 2 DROPS, BID DAILY
     Route: 047
     Dates: start: 1982
  17. LERCANIDIPINE [Concomitant]
     Active Substance: LERCANIDIPINE
     Indication: Hypertension
     Dosage: 20 MG, DAILY
     Route: 048
     Dates: start: 2007
  18. HERBALS\SAW PALMETTO [Concomitant]
     Active Substance: HERBALS\SAW PALMETTO
     Indication: Benign prostatic hyperplasia
     Dosage: 160 MG, BID
     Route: 048
     Dates: start: 2019
  19. TROSPIUM CHLORIDE [Concomitant]
     Active Substance: TROSPIUM CHLORIDE
     Indication: Urinary tract disorder prophylaxis
     Dosage: 20 MG, DAILY
     Route: 048
     Dates: start: 2021
  20. DESONIDE [Concomitant]
     Active Substance: DESONIDE
     Indication: Pemphigus
     Dosage: 1 APPLICATION, DAILY
     Route: 061
     Dates: start: 20221104, end: 20221106
  21. DESONIDE [Concomitant]
     Active Substance: DESONIDE
     Indication: Skin lesion
  22. FUROSEMIDE [Concomitant]
     Active Substance: FUROSEMIDE
     Indication: Oedema peripheral
     Dosage: 40 MG, DAILY
     Route: 048
     Dates: start: 20221012
  23. FUROSEMIDE [Concomitant]
     Active Substance: FUROSEMIDE
     Dosage: 40 MG, DAILY
     Route: 048
     Dates: start: 20221027, end: 20221031
  24. FUROSEMIDE [Concomitant]
     Active Substance: FUROSEMIDE
     Dosage: 20 MG, DAILY
     Route: 048
     Dates: start: 20221101, end: 20221106
  25. Dalacin [Concomitant]
     Indication: Skin lesion
     Dosage: 600 MG, TID
     Route: 048
     Dates: start: 20221027, end: 20221106
  26. Dalacin [Concomitant]
     Indication: Infection
  27. Dalacin [Concomitant]
     Indication: Groin infection
  28. PREDNISONE [Concomitant]
     Active Substance: PREDNISONE
     Indication: Pemphigus
     Dosage: 15 MG, DAILY
     Route: 048
     Dates: start: 20220910, end: 20221011
  29. MOVICOL [Concomitant]
     Active Substance: POLYETHYLENE GLYCOL 3350\POTASSIUM CHLORIDE\SODIUM BICARBONATE\SODIUM CHLORIDE
     Indication: Constipation prophylaxis
     Dosage: 2 BAG, DAILY
     Route: 048
     Dates: start: 2019
  30. ECONAZOLE [Concomitant]
     Active Substance: ECONAZOLE
     Indication: Antifungal prophylaxis
     Dosage: 1 APPLICATION, DAILY
     Route: 061
     Dates: start: 2022
  31. Solupred [Concomitant]
     Indication: Pemphigus
     Dosage: 40 MG, BID DAILY
     Route: 049
     Dates: start: 20220922, end: 20221011
  32. FUNGIZONE [Concomitant]
     Active Substance: AMPHOTERICIN B
     Indication: Fungal infection
     Dosage: 3 TSP, TID
     Route: 048
     Dates: start: 20221012, end: 20221102
  33. DOLIPRANE [Concomitant]
     Active Substance: ACETAMINOPHEN
     Indication: Pemphigus
     Dosage: 1 G ONCE
     Route: 048
     Dates: start: 20221020, end: 20221020
  34. XYLOCAINE [Concomitant]
     Active Substance: LIDOCAINE HYDROCHLORIDE
     Indication: Fungal infection
     Dosage: 1 SPOON, TID
     Route: 048
     Dates: start: 20221020, end: 20221106
  35. SODIUM BICARBONATE [Concomitant]
     Active Substance: SODIUM BICARBONATE
     Indication: Fungal infection
     Dosage: 3 APPLICATION, TID
     Route: 048
     Dates: start: 20221020
  36. BORIC ACID [Concomitant]
     Active Substance: BORIC ACID
     Indication: Groin infection
     Dosage: 1 APPLICATION, DAILY
     Route: 061
     Dates: start: 20221020, end: 20221027
  37. BETADINE [Concomitant]
     Active Substance: POVIDONE-IODINE
     Indication: Groin infection
     Dosage: 1 APPLICATION, DAILY
     Route: 061
     Dates: start: 20221027, end: 20221106
  38. CLOBEX [Concomitant]
     Active Substance: CLOBETASOL PROPIONATE
     Indication: Pemphigus
     Dosage: 1 APPLICATION EVERY TWO DAYS
     Route: 061
     Dates: start: 20221104, end: 20221106
  39. INFLUENZA VIRUS VACCINE [Concomitant]
     Active Substance: INFLUENZA VIRUS VACCINE
     Indication: Prophylaxis
     Dosage: 1 INJECTION
     Route: 030
     Dates: start: 20221102, end: 20221102
  40. Dermoval [Concomitant]
     Indication: Skin lesion
     Dosage: UNK
     Dates: start: 20221104
  41. Dermoval [Concomitant]
     Indication: Pemphigus
     Dosage: 1 APPLICATION, DAILY
     Route: 061
     Dates: start: 20221020, end: 20221104
  42. Dermoval [Concomitant]
     Indication: Injection site reaction
     Dosage: 1 APPLICATION, DAILY
     Route: 061
     Dates: start: 20221024, end: 20221104

REACTIONS (1)
  - Drug eruption [Not Recovered/Not Resolved]

NARRATIVE: CASE EVENT DATE: 20221107
